FAERS Safety Report 6104975-4 (Version None)
Quarter: 2009Q1

REPORT INFORMATION
  Report Type: 
  Country: None (occurrence: None)
  Receive Date: 20090304
  Receipt Date: 20090304
  Transmission Date: 20090719
  Serious: Yes (Death)
  Sender: FDA-Public Use
  Company Number: None

PATIENT
  Age: 76 Year
  Sex: Male
  Weight: 78 kg

DRUGS (2)
  1. AMPICILLIN AND SULBACTAM [Suspect]
     Indication: PYREXIA
     Dosage: 3 GM QID IV
     Route: 042
     Dates: start: 20090105, end: 20090116
  2. ENOXAPARIN SODIUM [Suspect]
     Indication: THROMBOSIS PROPHYLAXIS
     Dosage: 40 MG EVERY DAY SQ
     Route: 058
     Dates: start: 20090109, end: 20090116

REACTIONS (1)
  - THROMBOCYTOPENIA [None]
